FAERS Safety Report 12639909 (Version 1)
Quarter: 2016Q3

REPORT INFORMATION
  Report Type: Spontaneous
  Country: US (occurrence: None)
  Receive Date: 20160809
  Receipt Date: 20160809
  Transmission Date: 20161109
  Serious: Yes (Death)
  Sender: FDA-Public Use
  Company Number: None

PATIENT
  Age: 55 Year
  Sex: Female
  Weight: 94.2 kg

DRUGS (1)
  1. RAMICIRUMAB [Suspect]
     Active Substance: RAMUCIRUMAB

REACTIONS (8)
  - Pulseless electrical activity [None]
  - Bradycardia [None]
  - Rash [None]
  - Pneumothorax [None]
  - Swollen tongue [None]
  - Dyspnoea [None]
  - Loss of consciousness [None]
  - Cardiac arrest [None]

NARRATIVE: CASE EVENT DATE: 20150909
